FAERS Safety Report 5165398-8 (Version None)
Quarter: 2006Q4

REPORT INFORMATION
  Report Type: 
  Country: None (occurrence: None)
  Receive Date: 20061206
  Receipt Date: 20060920
  Transmission Date: 20070319
  Serious: Yes (Life-Threatening, Hospitalization)
  Sender: FDA-Public Use
  Company Number: PHNU2006DE03205

PATIENT
  Age: 61 Year
  Sex: Male
  Weight: 178 kg

DRUGS (1)
  1. SANDOSTATIN LAR [Suspect]
     Indication: ACROMEGALY
     Dosage: 30 MG
     Route: 030
     Dates: start: 20060919

REACTIONS (16)
  - CHILLS [None]
  - DEHYDRATION [None]
  - DIARRHOEA [None]
  - DISSEMINATED INTRAVASCULAR COAGULATION [None]
  - ILEUS [None]
  - INJECTION SITE ABSCESS [None]
  - MULTI-ORGAN FAILURE [None]
  - MUSCLE NECROSIS [None]
  - NECROTISING FASCIITIS STREPTOCOCCAL [None]
  - ORGAN FAILURE [None]
  - PAIN [None]
  - PYREXIA [None]
  - SEPSIS [None]
  - SEPTIC SHOCK [None]
  - SUBILEUS [None]
  - SURGERY [None]
